FAERS Safety Report 9299546 (Version 1)
Quarter: 2013Q2

REPORT INFORMATION
  Report Type: Spontaneous
  Country: US (occurrence: US)
  Receive Date: 20130521
  Receipt Date: 20130521
  Transmission Date: 20140414
  Serious: No
  Sender: FDA-Public Use
  Company Number: 2007BI019939

PATIENT
  Age: 50 Year
  Sex: Female

DRUGS (1)
  1. TYSABRI [Suspect]
     Indication: MULTIPLE SCLEROSIS
     Route: 042
     Dates: start: 20070713, end: 20130228

REACTIONS (7)
  - Bronchitis [Recovered/Resolved with Sequelae]
  - Memory impairment [Not Recovered/Not Resolved]
  - Joint dislocation [Recovered/Resolved]
  - Fall [Recovered/Resolved]
  - Asthma [Not Recovered/Not Resolved]
  - Rash erythematous [Recovered/Resolved]
  - Pneumonia [Recovered/Resolved]
